FAERS Safety Report 18922939 (Version 1)
Quarter: 2021Q1

REPORT INFORMATION
  Report Type: Spontaneous
  Country: US (occurrence: US)
  Receive Date: 20210222
  Receipt Date: 20210222
  Transmission Date: 20210420
  Serious: No
  Sender: FDA-Public Use
  Company Number: None

PATIENT
  Age: 43 Year
  Sex: Female
  Weight: 88.45 kg

DRUGS (2)
  1. CADD MEDICATION CASSETTE RESERVOIR [Suspect]
     Active Substance: DEVICE
  2. FLUOROURACIL (5?FU) [Suspect]
     Active Substance: FLUOROURACIL

REACTIONS (1)
  - Device leakage [None]

NARRATIVE: CASE EVENT DATE: 20210205
